FAERS Safety Report 6148641-8 (Version None)
Quarter: 2009Q2

REPORT INFORMATION
  Report Type: 
  Country: None (occurrence: None)
  Receive Date: 20090408
  Receipt Date: 20090330
  Transmission Date: 20091009
  Serious: Yes (Hospitalization)
  Sender: FDA-Public Use
  Company Number: IL-WATSON-2009-02094

PATIENT
  Age: 57 Year
  Sex: Female

DRUGS (1)
  1. NITROFURANTOIN (WATSON LABORATORIES) [Suspect]
     Indication: CULTURE URINE POSITIVE
     Dosage: UNK

REACTIONS (3)
  - BLOOD CREATINE PHOSPHOKINASE INCREASED [None]
  - HEPATITIS [None]
  - TUBULOINTERSTITIAL NEPHRITIS [None]
